FAERS Safety Report 5968864-8 (Version None)
Quarter: 2008Q4

REPORT INFORMATION
  Report Type: 
  Country: None (occurrence: None)
  Receive Date: 20081125
  Receipt Date: 20081125
  Transmission Date: 20090506
  Serious: Yes (Life-Threatening, Hospitalization, Other)
  Sender: FDA-Public Use
  Company Number: None

PATIENT
  Age: 80 Year
  Sex: Male

DRUGS (1)
  1. RANEXA [Suspect]
     Indication: ANGINA PECTORIS
     Dosage: 1000 MG BID PO  : 1000 MG ONCE DAILY PO
     Route: 048
     Dates: start: 20070427, end: 20081120

REACTIONS (3)
  - ORTHOSTATIC HYPOTENSION [None]
  - PRESYNCOPE [None]
  - SYNCOPE [None]
